FAERS Safety Report 24755019 (Version 1)
Quarter: 2024Q4

REPORT INFORMATION
  Report Type: Report from Study
  Country: US (occurrence: US)
  Receive Date: 20241219
  Receipt Date: 20241219
  Transmission Date: 20250114
  Serious: Yes (Other)
  Sender: ALEXION PHARMACEUTICALS
  Company Number: US-AstraZeneca-CH-00770242A

PATIENT

DRUGS (4)
  1. EPLONTERSEN SODIUM [Suspect]
     Active Substance: EPLONTERSEN SODIUM
  2. EPLONTERSEN SODIUM [Suspect]
     Active Substance: EPLONTERSEN SODIUM
     Route: 058
  3. EPLONTERSEN SODIUM [Suspect]
     Active Substance: EPLONTERSEN SODIUM
  4. EPLONTERSEN SODIUM [Suspect]
     Active Substance: EPLONTERSEN SODIUM
     Route: 058

REACTIONS (4)
  - Pulmonary oedema [Unknown]
  - Swelling [Unknown]
  - Fatigue [Unknown]
  - Chest pain [Unknown]
